FAERS Safety Report 8174983-0 (Version None)
Quarter: 2012Q1

REPORT INFORMATION
  Report Type: 
  Country: None (occurrence: None)
  Receive Date: 20120229
  Receipt Date: 20120220
  Transmission Date: 20120608
  Serious: Yes (Other)
  Sender: FDA-Public Use
  Company Number: PHHY2012DE012475

PATIENT
  Sex: Male
  Weight: 81 kg

DRUGS (8)
  1. SANDOSTATIN LAR [Suspect]
     Indication: PANCREATIC NEUROENDOCRINE TUMOUR
     Dosage: 30 MG
     Route: 030
     Dates: start: 20100620
  2. OLMESARTAN MEDOXOMIL [Concomitant]
     Dosage: 20 MG, UNK
     Route: 065
  3. BEROTEC [Concomitant]
     Dosage: 100 UKN, UNK
     Route: 065
  4. NIFEHEXAL [Concomitant]
     Dosage: UNK UKN, UNK
     Route: 065
  5. ALLOPURINOL [Concomitant]
     Dosage: 300 MG, UNK
     Route: 065
  6. SPIRIVA [Concomitant]
     Dosage: 18 UG, UNK
     Route: 065
  7. CYCLOCAPS [Concomitant]
     Dosage: 400 UKN, UNK
     Route: 065
  8. SANDOSTATIN [Suspect]
     Indication: PANCREATIC NEUROENDOCRINE TUMOUR
     Dosage: 600 UG, UNK
     Route: 058
     Dates: start: 20101129, end: 20120208

REACTIONS (2)
  - FLUSHING [None]
  - RESPIRATORY DISTRESS [None]
